FAERS Safety Report 13243915 (Version 1)
Quarter: 2017Q1

REPORT INFORMATION
  Report Type: Spontaneous
  Country: US (occurrence: US)
  Receive Date: 20170216
  Receipt Date: 20170216
  Transmission Date: 20170428
  Serious: No
  Sender: FDA-Public Use
  Company Number: US-JAZZ-2016-US-006101

PATIENT
  Age: 40 Year
  Sex: Female

DRUGS (18)
  1. PRIALT [Suspect]
     Active Substance: ZICONOTIDE ACETATE
     Dosage: 0.139 ?G, QH
     Route: 037
     Dates: start: 20160316
  2. PRIALT [Suspect]
     Active Substance: ZICONOTIDE ACETATE
     Dosage: 0.127 ?G, QH
     Route: 037
     Dates: start: 20160422
  3. BUPIVACAINE. [Suspect]
     Active Substance: BUPIVACAINE
     Indication: PAIN
     Dosage: 0.329 MG, QH
     Route: 037
     Dates: start: 20151231
  4. BUPIVACAINE. [Suspect]
     Active Substance: BUPIVACAINE
     Dosage: 0.417 MG, QH
     Route: 037
     Dates: start: 20160316
  5. CLONIDINE. [Suspect]
     Active Substance: CLONIDINE
     Indication: PAIN
     Dosage: 4.389 ?G, QH
     Route: 037
     Dates: start: 20151231
  6. PRIALT [Suspect]
     Active Substance: ZICONOTIDE ACETATE
     Dosage: 0.104 ?G, QH
     Route: 037
     Dates: start: 20160129
  7. PRIALT [Suspect]
     Active Substance: ZICONOTIDE ACETATE
     Dosage: 0.067 ?G, QH
     Route: 037
     Dates: start: 20151215
  8. BUPIVACAINE. [Suspect]
     Active Substance: BUPIVACAINE
     Dosage: 0.313 MG, QH
     Route: 037
     Dates: start: 20160129
  9. CLONIDINE. [Suspect]
     Active Substance: CLONIDINE
     Dosage: 5.06 ?G, QH
     Route: 037
     Dates: start: 20160316
  10. CLONIDINE. [Suspect]
     Active Substance: CLONIDINE
     Dosage: 3.61 ?G, QH
     Route: 037
     Dates: start: 20151215
  11. CLONIDINE. [Suspect]
     Active Substance: CLONIDINE
     Dosage: 5.556 ?G, QH
     Route: 037
     Dates: start: 20160316
  12. CLONIDINE. [Suspect]
     Active Substance: CLONIDINE
     Dosage: 4.438 ?G, QH
     Route: 037
     Dates: start: 20160309
  13. BUPIVACAINE. [Suspect]
     Active Substance: BUPIVACAINE
     Dosage: 0.333 MG, QH
     Route: 037
     Dates: start: 20160309
  14. BUPIVACAINE. [Suspect]
     Active Substance: BUPIVACAINE
     Dosage: 0.270 MG, QH
     Route: 037
     Dates: start: 20151215
  15. CLONIDINE. [Suspect]
     Active Substance: CLONIDINE
     Dosage: 4.17 ?G, QH
     Route: 037
     Dates: start: 20160129
  16. BUPIVACAINE. [Suspect]
     Active Substance: BUPIVACAINE
     Dosage: 0.38 MG, QH
     Route: 037
     Dates: start: 20160316
  17. PRIALT [Suspect]
     Active Substance: ZICONOTIDE ACETATE
     Indication: PAIN
     Dosage: 0.082 ?G, QH
     Route: 037
     Dates: start: 20151231
  18. PRIALT [Suspect]
     Active Substance: ZICONOTIDE ACETATE
     Dosage: 0.111 ?G, QH
     Route: 037
     Dates: start: 20160309

REACTIONS (8)
  - Nausea [Recovered/Resolved]
  - Burning sensation [Recovered/Resolved]
  - Pain [Recovered/Resolved]
  - Device issue [Recovered/Resolved with Sequelae]
  - Neuralgia [Recovered/Resolved]
  - Vomiting [Recovered/Resolved]
  - Medical device site irritation [Recovered/Resolved]
  - Medical device site pain [Recovered/Resolved]

NARRATIVE: CASE EVENT DATE: 20160129
